FAERS Safety Report 8319440-3 (Version None)
Quarter: 2012Q2

REPORT INFORMATION
  Report Type: 
  Country: None (occurrence: None)
  Receive Date: 20120427
  Receipt Date: 20120424
  Transmission Date: 20120825
  Serious: Yes (Hospitalization)
  Sender: FDA-Public Use
  Company Number: US-PURDUE-USA-2012-0083537

PATIENT
  Sex: Male
  Weight: 86.168 kg

DRUGS (7)
  1. XANAX [Concomitant]
     Indication: PRODUCT USED FOR UNKNOWN INDICATION
  2. OXYCONTIN [Suspect]
     Indication: SCIATICA
     Dosage: 80 MG, TID
     Route: 048
  3. DIOVAN [Concomitant]
     Indication: PRODUCT USED FOR UNKNOWN INDICATION
  4. PREDNISONE [Concomitant]
     Indication: PRODUCT USED FOR UNKNOWN INDICATION
  5. NORVASC [Concomitant]
     Indication: PRODUCT USED FOR UNKNOWN INDICATION
  6. OXYCONTIN [Suspect]
     Dosage: 40 MG, Q8H
     Route: 048
  7. MSIR CAPSULES [Concomitant]
     Indication: BREAKTHROUGH PAIN
     Dosage: 30 MG, Q4H
     Route: 048

REACTIONS (5)
  - DRUG EFFECT DECREASED [None]
  - OROPHARYNGEAL PAIN [None]
  - FREQUENT BOWEL MOVEMENTS [None]
  - IDIOPATHIC THROMBOCYTOPENIC PURPURA [None]
  - UNEVALUABLE EVENT [None]
